FAERS Safety Report 13634137 (Version 1)
Quarter: 2017Q2

REPORT INFORMATION
  Report Type: Spontaneous
  Country: US (occurrence: US)
  Receive Date: 20170609
  Receipt Date: 20170609
  Transmission Date: 20170830
  Serious: Yes (Other)
  Sender: FDA-Public Use
  Company Number: US-TAKEDA-2017TUS012547

PATIENT
  Age: 58 Year
  Sex: Male
  Weight: 102.49 kg

DRUGS (1)
  1. ULORIC [Suspect]
     Active Substance: FEBUXOSTAT
     Indication: BLOOD URIC ACID ABNORMAL
     Dosage: 40 MG, UNK
     Route: 065
     Dates: start: 201704, end: 201705

REACTIONS (7)
  - Hepatic enzyme increased [Unknown]
  - Abdominal distension [Not Recovered/Not Resolved]
  - Pancreatitis [Recovering/Resolving]
  - Kidney infection [Recovered/Resolved]
  - Myalgia [Not Recovered/Not Resolved]
  - Gastrointestinal pain [Not Recovered/Not Resolved]
  - Gout [Recovered/Resolved]

NARRATIVE: CASE EVENT DATE: 201704
